FAERS Safety Report 6868495-1 (Version None)
Quarter: 2010Q3

REPORT INFORMATION
  Report Type: 
  Country: None (occurrence: None)
  Receive Date: 20100722
  Receipt Date: 20080530
  Transmission Date: 20110219
  Serious: No
  Sender: FDA-Public Use
  Company Number: US-PFIZER INC-2008046294

PATIENT
  Sex: Female
  Weight: 100 kg

DRUGS (6)
  1. CHANTIX [Suspect]
     Indication: SMOKING CESSATION THERAPY
     Dates: start: 20080410, end: 20080417
  2. HYDROCODONE [Concomitant]
  3. SYNTHROID [Concomitant]
  4. TOPAMAX [Concomitant]
  5. CRESTOR [Concomitant]
  6. CYMBALTA [Concomitant]

REACTIONS (1)
  - MALAISE [None]
